FAERS Safety Report 5649283-0 (Version None)
Quarter: 2008Q1

REPORT INFORMATION
  Report Type: 
  Country: None (occurrence: None)
  Receive Date: 20080304
  Receipt Date: 20071202
  Transmission Date: 20080703
  Serious: No
  Sender: FDA-Public Use
  Company Number: US-BAYER-200810038NA

PATIENT
  Age: 42 Year
  Sex: Female
  Weight: 64 kg

DRUGS (3)
  1. ULTRAVIST (PHARMACY BULK) [Suspect]
     Indication: COMPUTERISED TOMOGRAM
     Dosage: TOTAL DAILY DOSE: 100 ML  UNIT DOSE: 100 ML
     Route: 042
     Dates: start: 20071004, end: 20071004
  2. READI-CAT [Concomitant]
  3. SULFA DRUGS [Concomitant]

REACTIONS (4)
  - ERYTHEMA [None]
  - LOCAL SWELLING [None]
  - SWELLING FACE [None]
  - VOMITING [None]
